FAERS Safety Report 24023538 (Version 1)
Quarter: 2024Q2

REPORT INFORMATION
  Report Type: Spontaneous
  Country: CN (occurrence: CN)
  Receive Date: 20240627
  Receipt Date: 20240627
  Transmission Date: 20240716
  Serious: Yes (Other)
  Sender: FDA-Public Use
  Company Number: CN-BEIGENE-BGN-2024-009473

PATIENT

DRUGS (7)
  1. TISLELIZUMAB [Suspect]
     Active Substance: TISLELIZUMAB
     Indication: Adenocarcinoma gastric
     Dosage: 0.2 GRAM
     Route: 041
     Dates: start: 20240202
  2. TISLELIZUMAB [Suspect]
     Active Substance: TISLELIZUMAB
     Dosage: 0.2 GRAM
     Route: 041
     Dates: start: 20240303
  3. TISLELIZUMAB [Suspect]
     Active Substance: TISLELIZUMAB
     Dosage: 0.2 GRAM
     Route: 041
     Dates: start: 20240409
  4. PACLITAXEL [Concomitant]
     Active Substance: PACLITAXEL
     Indication: Adenocarcinoma gastric
     Dosage: 0.4 GRAM
     Route: 041
     Dates: start: 20240202
  5. PACLITAXEL [Concomitant]
     Active Substance: PACLITAXEL
     Dosage: 0.4 GRAM
     Route: 041
     Dates: start: 20240303
  6. PACLITAXEL [Concomitant]
     Active Substance: PACLITAXEL
     Dosage: 0.4 GRAM
     Route: 041
     Dates: start: 20240409
  7. PACLITAXEL [Concomitant]
     Active Substance: PACLITAXEL
     Dosage: 0.4 GRAM
     Route: 041
     Dates: start: 20240417

REACTIONS (1)
  - Thyroxine increased [Recovered/Resolved]

NARRATIVE: CASE EVENT DATE: 20240506
